FAERS Safety Report 21749869 (Version 2)
Quarter: 2023Q1

REPORT INFORMATION
  Report Type: Spontaneous
  Country: DE (occurrence: DE)
  Receive Date: 20221219
  Receipt Date: 20230227
  Transmission Date: 20230417
  Serious: Yes (Life-Threatening, Hospitalization, Other)
  Sender: FDA-Public Use
  Company Number: DE-MYLANLABS-2022M1140400

PATIENT
  Age: 81 Year
  Sex: Female

DRUGS (1)
  1. RAMIPRIL [Suspect]
     Active Substance: RAMIPRIL
     Indication: Hypocholesterolaemia
     Dosage: UNK
     Route: 065

REACTIONS (6)
  - Angioedema [Recovering/Resolving]
  - Swollen tongue [Recovering/Resolving]
  - Oral mucosal blistering [Unknown]
  - Respiratory distress [Unknown]
  - Lip swelling [Recovering/Resolving]
  - Off label use [Unknown]
